FAERS Safety Report 11694402 (Version 2)
Quarter: 2015Q4

REPORT INFORMATION
  Report Type: Spontaneous
  Country: ES (occurrence: ES)
  Receive Date: 20151103
  Receipt Date: 20151105
  Transmission Date: 20160304
  Serious: No
  Sender: FDA-Public Use
  Company Number: ES-JNJFOC-20151021518

PATIENT
  Sex: Female

DRUGS (4)
  1. DUROGESIC [Suspect]
     Active Substance: FENTANYL
     Indication: BONE PAIN
     Route: 062
  2. PREGABALINE [Concomitant]
     Active Substance: PREGABALIN
     Route: 065
  3. PARACETAMOL [Concomitant]
     Active Substance: ACETAMINOPHEN
     Route: 065
  4. CONDROSAN [Concomitant]
     Route: 065

REACTIONS (2)
  - Drug administered at inappropriate site [Unknown]
  - Product quality issue [Unknown]
